FAERS Safety Report 6447118-X (Version None)
Quarter: 2009Q4

REPORT INFORMATION
  Report Type: 
  Country: None (occurrence: None)
  Receive Date: 20091119
  Receipt Date: 20091109
  Transmission Date: 20100525
  Serious: Yes (Death, Other)
  Sender: FDA-Public Use
  Company Number: JP-PFIZER INC-2009280141

PATIENT
  Age: 73 Year
  Sex: Male

DRUGS (18)
  1. UNASYN [Suspect]
     Indication: PNEUMONIA
     Dosage: 0.75 MG, 2X/DAY
     Route: 042
     Dates: start: 20090912, end: 20090920
  2. PLETAL [Suspect]
     Dosage: 100 MG, 2X/DAY
     Route: 048
     Dates: end: 20090926
  3. ANPLAG [Suspect]
     Indication: AORTIC VALVE ATRESIA
     Dosage: 100 MG, 3X/DAY
     Route: 048
     Dates: end: 20090926
  4. ASPIRIN [Suspect]
     Indication: CEREBRAL INFARCTION
     Dosage: 100 MG,1X/DAY,DAILY
     Route: 048
     Dates: end: 20090917
  5. VANCOMYCIN HYDROCHLORIDE [Suspect]
     Indication: STAPHYLOCOCCAL INFECTION
     Dosage: 0.5 G, DAILY
     Route: 042
     Dates: start: 20090921, end: 20090923
  6. VANCOMYCIN HYDROCHLORIDE [Suspect]
     Dosage: UNK G, 2X/DAY
     Route: 042
     Dates: start: 20090925, end: 20090928
  7. GASTER [Concomitant]
     Dosage: UNK
     Route: 048
     Dates: end: 20090927
  8. LIPITOR [Concomitant]
     Dosage: UNK
     Route: 048
     Dates: end: 20090926
  9. LOXONIN [Concomitant]
     Dosage: UNK
     Route: 048
     Dates: end: 20090917
  10. SIGMART [Concomitant]
     Dosage: UNK
     Route: 048
     Dates: end: 20090929
  11. DEPAKENE [Concomitant]
     Dosage: UNK
     Route: 048
     Dates: end: 20090917
  12. CONIEL [Concomitant]
     Dosage: UNK
     Route: 048
     Dates: end: 20090926
  13. MAGNESIUM OXIDE [Concomitant]
     Dosage: UNK
     Route: 048
     Dates: end: 20090917
  14. DEPAS [Concomitant]
     Dosage: UNK
     Route: 048
     Dates: end: 20090925
  15. SEROQUEL [Concomitant]
     Dosage: UNK
     Route: 048
     Dates: end: 20090925
  16. LANDSEN [Concomitant]
     Dosage: UNK
     Route: 048
     Dates: end: 20090925
  17. POLAPREZINC [Concomitant]
     Dosage: UNK
     Route: 048
     Dates: end: 20090925
  18. CEFOTIAM HYDROCHLORIDE [Concomitant]
     Indication: PNEUMONIA
     Dosage: 2 G/TWICE/DAY
     Route: 042
     Dates: start: 20090831, end: 20090905

REACTIONS (2)
  - HAEMORRHAGIC DIATHESIS [None]
  - PNEUMONIA [None]
